FAERS Safety Report 5444222-X (Version None)
Quarter: 2007Q3

REPORT INFORMATION
  Report Type: 
  Country: None (occurrence: None)
  Receive Date: 20070904
  Receipt Date: 20070904
  Transmission Date: 20080115
  Serious: Yes (Other)
  Sender: FDA-Public Use
  Company Number: None

PATIENT
  Sex: Male

DRUGS (2)
  1. KETALAR [Suspect]
     Indication: NUCLEAR MAGNETIC RESONANCE IMAGING
     Dosage: 6 MG/KG TOTAL INCREMENTAL DOSES IV BOLUS
     Route: 040
  2. KETALAR [Suspect]
     Indication: SEDATIVE THERAPY
     Dosage: 6 MG/KG TOTAL INCREMENTAL DOSES IV BOLUS
     Route: 040

REACTIONS (5)
  - AGITATION [None]
  - CRYING [None]
  - DRUG INEFFECTIVE [None]
  - PAIN [None]
  - PHARMACEUTICAL PRODUCT COMPLAINT [None]
